FAERS Safety Report 5522566-0 (Version None)
Quarter: 2007Q4

REPORT INFORMATION
  Report Type: 
  Country: None (occurrence: None)
  Receive Date: 20071120
  Receipt Date: 20071109
  Transmission Date: 20080405
  Serious: Yes (Hospitalization, Other)
  Sender: FDA-Public Use
  Company Number: US-PFIZER INC-2007084938

PATIENT
  Sex: Female
  Weight: 46.818 kg

DRUGS (5)
  1. NORVASC [Suspect]
     Indication: HYPERTENSION
     Dates: start: 20061001, end: 20070701
  2. AMLODIPINE [Suspect]
     Indication: HYPERTENSION
  3. COREG [Concomitant]
  4. BENICAR [Concomitant]
  5. DOXAZOSIN MESYLATE [Concomitant]

REACTIONS (2)
  - COELIAC DISEASE [None]
  - TYPE 1 DIABETES MELLITUS [None]
